FAERS Safety Report 12887450 (Version 1)
Quarter: 2016Q4

REPORT INFORMATION
  Report Type: Report from Study
  Country: BR (occurrence: BR)
  Receive Date: 20161026
  Receipt Date: 20161026
  Transmission Date: 20170207
  Serious: Yes (Death)
  Sender: FDA-Public Use
  Company Number: PHHY2016BR147041

PATIENT
  Age: 41 Year
  Sex: Female

DRUGS (1)
  1. EXJADE [Suspect]
     Active Substance: DEFERASIROX
     Indication: BONE MARROW FAILURE
     Dosage: 1000 MG, UNK
     Route: 048
     Dates: start: 201606

REACTIONS (3)
  - Cardiac arrest [Fatal]
  - Urinary tract infection [Unknown]
  - Pain [Unknown]

NARRATIVE: CASE EVENT DATE: 20161017
